FAERS Safety Report 6254813-4 (Version None)
Quarter: 2009Q3

REPORT INFORMATION
  Report Type: 
  Country: None (occurrence: None)
  Receive Date: 20090702
  Receipt Date: 20090625
  Transmission Date: 20100115
  Serious: Yes (Hospitalization, Other)
  Sender: FDA-Public Use
  Company Number: US-PFIZER INC-2009232350

PATIENT
  Sex: Male

DRUGS (19)
  1. NEURONTIN [Suspect]
     Indication: PAIN
     Dosage: UNK
     Dates: start: 20090220, end: 20090424
  2. NEURONTIN [Suspect]
     Indication: POST-THORACOTOMY PAIN SYNDROME
  3. CELEXA [Suspect]
     Indication: POST-TRAUMATIC STRESS DISORDER
     Dosage: 40 MG, 1X/DAY
     Route: 048
     Dates: start: 20070301, end: 20090514
  4. CELEXA [Suspect]
     Indication: DEPRESSION
  5. CELEXA [Suspect]
     Indication: SUICIDAL IDEATION
  6. TRAMADOL [Suspect]
     Indication: BACK PAIN
     Dosage: UNK
     Dates: start: 20081001, end: 20090424
  7. METOPROLOL [Suspect]
     Indication: HYPERTENSION
     Dosage: UNK
     Dates: start: 20030101, end: 20081001
  8. VICODIN [Suspect]
     Indication: PAIN
     Dosage: UNK
     Dates: start: 20090424, end: 20090424
  9. VICODIN [Suspect]
     Indication: POST-THORACOTOMY PAIN SYNDROME
  10. DILAUDID [Suspect]
     Indication: PAIN
     Dosage: UNK
     Dates: start: 20090220, end: 20090424
  11. DILAUDID [Suspect]
     Indication: POST-THORACOTOMY PAIN SYNDROME
  12. XANAX [Concomitant]
     Indication: ANXIETY
     Dosage: UNK
     Dates: start: 20070301, end: 20070501
  13. ATIVAN [Concomitant]
     Indication: ANXIETY
     Dosage: UNK
     Dates: start: 20070501, end: 20070601
  14. CLONAZEPAM [Concomitant]
     Indication: ANXIETY
     Dosage: 1 MG, 2X/DAY
     Route: 048
     Dates: start: 20070601
  15. LISINOPRIL [Concomitant]
     Indication: HYPERTENSION
     Dosage: UNK
     Dates: start: 20060808
  16. ACTOS [Concomitant]
     Dosage: UNK
  17. ALLOPURINOL [Concomitant]
     Indication: GOUT
     Dosage: 300 MG, UNK
     Route: 048
  18. PRAVACHOL [Concomitant]
     Dosage: UNK
  19. IBUPROFEN [Concomitant]
     Indication: POST-THORACOTOMY PAIN SYNDROME
     Dosage: 800 MG, 4X/DAY
     Route: 048
     Dates: start: 20090301

REACTIONS (9)
  - DISORIENTATION [None]
  - DIZZINESS [None]
  - FUNGAL INFECTION [None]
  - HYPOTENSION [None]
  - LOSS OF CONSCIOUSNESS [None]
  - MENTAL STATUS CHANGES [None]
  - OBSESSIVE-COMPULSIVE PERSONALITY DISORDER [None]
  - PNEUMONIA [None]
  - POST-THORACOTOMY PAIN SYNDROME [None]
